FAERS Safety Report 25644579 (Version 3)
Quarter: 2025Q3

REPORT INFORMATION
  Report Type: Spontaneous
  Country: US (occurrence: US)
  Receive Date: 20250805
  Receipt Date: 20250922
  Transmission Date: 20251021
  Serious: Yes (Hospitalization)
  Sender: UCB
  Company Number: US-UCBSA-2025047216

PATIENT
  Sex: Female
  Weight: 51.701 kg

DRUGS (1)
  1. CIMZIA [Suspect]
     Active Substance: CERTOLIZUMAB PEGOL
     Indication: Rheumatoid arthritis
     Dosage: 200 MILLIGRAM, EV 2 WEEKS(QOW)
     Route: 058
     Dates: start: 202410

REACTIONS (4)
  - Respiratory tract infection [Unknown]
  - Cardiac disorder [Unknown]
  - Illness [Unknown]
  - Fatigue [Unknown]
